FAERS Safety Report 6739331-9 (Version None)
Quarter: 2010Q2

REPORT INFORMATION
  Report Type: 
  Country: None (occurrence: None)
  Receive Date: 20100517
  Receipt Date: 20090924
  Transmission Date: 20101027
  Serious: Yes (Hospitalization)
  Sender: FDA-Public Use
  Company Number: SPV1-2009-01903

PATIENT
  Age: 47 Year
  Sex: Male
  Weight: 70.3 kg

DRUGS (4)
  1. FOSRENOL [Suspect]
     Indication: HYPERPHOSPHATAEMIA
     Dosage: 2000 MG, 3X/DAY:TID WITH MEALS, ORAL ; 2000 MG, 3X/DAY:TID WITH MEALS, ORAL
     Route: 048
     Dates: start: 20060101, end: 20070501
  2. FOSRENOL [Suspect]
     Indication: HYPERPHOSPHATAEMIA
     Dosage: 2000 MG, 3X/DAY:TID WITH MEALS, ORAL ; 2000 MG, 3X/DAY:TID WITH MEALS, ORAL
     Route: 048
     Dates: start: 20090801
  3. METOPROLOL (METOPROLOL) [Concomitant]
  4. NORVASC [Concomitant]

REACTIONS (2)
  - DECREASED APPETITE [None]
  - GRAFT INFECTION [None]
